FAERS Safety Report 8491818 (Version 2)
Quarter: 2013Q2

REPORT INFORMATION
  Report Type: Spontaneous
  Country: US (occurrence: None)
  Receive Date: 20120320
  Receipt Date: 20120627
  Transmission Date: 20140414
  Serious: Yes (Other)
  Sender: FDA-Public Use
  Company Number: US-2012-10070

PATIENT
  Sex: Male

DRUGS (1)
  1. SAMSCA [Suspect]
     Dosage: 30 MG MILLIGRAM(S), DAILY DOSE, ORAL
     Route: 048

REACTIONS (2)
  - HYPERNATRAEMIA [None]
  - Laboratory test interference [None]
